FAERS Safety Report 22159125 (Version 3)
Quarter: 2023Q2

REPORT INFORMATION
  Report Type: Spontaneous
  Country: GB (occurrence: GB)
  Receive Date: 20230331
  Receipt Date: 20230505
  Transmission Date: 20230722
  Serious: Yes (Other)
  Sender: FDA-Public Use
  Company Number: GB-ADVANZ PHARMA-202303002230

PATIENT

DRUGS (5)
  1. ZONEGRAN [Suspect]
     Active Substance: ZONISAMIDE
     Dosage: 250 MG, QD, IN THE MORNING (SEVERAL NUMBER OF UNITS INVOLVED)
  2. ZONEGRAN [Suspect]
     Active Substance: ZONISAMIDE
     Dosage: 250 MG, QD, IN THE EVENING (SEVERAL NUMBER OF UNITS INVOLVED)
  3. KEPPRA [Suspect]
     Active Substance: LEVETIRACETAM
     Dosage: 1750 MG, QD,  (IN THE MORNING)
  4. KEPPRA [Suspect]
     Active Substance: LEVETIRACETAM
     Dosage: 2000 MG, QD, (IN THE EVENING)
  5. LAMOTRIGINE [Suspect]
     Active Substance: LAMOTRIGINE
     Dosage: 250 MG, BID, (IN THE MORNING AND EVENING)

REACTIONS (3)
  - Seizure [Unknown]
  - Condition aggravated [Unknown]
  - Drug ineffective [Unknown]
